FAERS Safety Report 14620343 (Version 1)
Quarter: 2018Q1

REPORT INFORMATION
  Report Type: Spontaneous
  Country: US (occurrence: US)
  Receive Date: 20180309
  Receipt Date: 20180309
  Transmission Date: 20180509
  Serious: Yes (Hospitalization)
  Sender: FDA-Public Use
  Company Number: US-TEVA-2018-US-866486

PATIENT
  Age: 43 Year
  Sex: Female

DRUGS (1)
  1. CLOZAPINE. [Suspect]
     Active Substance: CLOZAPINE
     Dosage: 475 MILLIGRAM DAILY;
     Route: 065

REACTIONS (6)
  - Anxiety [Unknown]
  - Electrocardiogram QT prolonged [Unknown]
  - Obsessive-compulsive disorder [Unknown]
  - Orthostatic hypotension [Unknown]
  - Drug level increased [Unknown]
  - Hallucination [Unknown]
